FAERS Safety Report 16052446 (Version 1)
Quarter: 2019Q1

REPORT INFORMATION
  Report Type: Other
  Country: MA (occurrence: MA)
  Receive Date: 20190308
  Receipt Date: 20190308
  Transmission Date: 20190418
  Serious: Yes (Hospitalization)
  Sender: FDA-Public Use
  Company Number: MA-GENUS_LIFESCIENCES-USA-POI0580201900226

PATIENT
  Age: 49 Year
  Sex: Female

DRUGS (1)
  1. YOSPRALA [Suspect]
     Active Substance: ASPIRIN\OMEPRAZOLE
     Indication: ARTHRALGIA
     Dates: start: 2018, end: 2018

REACTIONS (2)
  - Kounis syndrome [Recovered/Resolved]
  - Aspirin-exacerbated respiratory disease [Recovered/Resolved]

NARRATIVE: CASE EVENT DATE: 2018
